FAERS Safety Report 21958609 (Version 1)
Quarter: 2023Q1

REPORT INFORMATION
  Report Type: Spontaneous
  Country: US (occurrence: US)
  Receive Date: 20230206
  Receipt Date: 20230206
  Transmission Date: 20230418
  Serious: No
  Sender: FDA-Public Use
  Company Number: US-BIOGEN-2023BI01185641

PATIENT
  Sex: Female

DRUGS (1)
  1. TECFIDERA [Suspect]
     Active Substance: DIMETHYL FUMARATE
     Indication: Multiple sclerosis
     Route: 050

REACTIONS (6)
  - Sensory disturbance [Unknown]
  - Rash macular [Unknown]
  - Paraesthesia [Unknown]
  - Eye pruritus [Unknown]
  - Dyspnoea [Unknown]
  - Nausea [Unknown]
